FAERS Safety Report 6965069-9 (Version None)
Quarter: 2010Q3

REPORT INFORMATION
  Report Type: 
  Country: None (occurrence: None)
  Receive Date: 20100903
  Receipt Date: 20100825
  Transmission Date: 20110219
  Serious: Yes (Other)
  Sender: FDA-Public Use
  Company Number: US-ASTRAZENECA-2010SE40039

PATIENT
  Age: 31454 Day
  Sex: Female

DRUGS (7)
  1. TOPROL-XL [Suspect]
     Indication: THROMBOSIS
     Route: 048
     Dates: start: 20100602, end: 20100721
  2. TOPROL-XL [Suspect]
     Indication: AORTIC VALVE STENOSIS
     Route: 048
     Dates: start: 20100602, end: 20100721
  3. PLAVIX [Suspect]
     Indication: THROMBOSIS
     Route: 048
     Dates: start: 20100602, end: 20100719
  4. LIPITOR [Suspect]
     Route: 065
     Dates: start: 20100401, end: 20100721
  5. ASPIRIN [Concomitant]
  6. MULTI-VITAMIN [Concomitant]
     Dates: end: 20100701
  7. CONTRAST MEDIA [Concomitant]
     Dates: start: 20100608, end: 20100611

REACTIONS (7)
  - ALANINE AMINOTRANSFERASE INCREASED [None]
  - ASPARTATE AMINOTRANSFERASE INCREASED [None]
  - BLOOD ALKALINE PHOSPHATASE INCREASED [None]
  - CONTUSION [None]
  - HEPATIC CIRRHOSIS [None]
  - HEPATIC FIBROSIS [None]
  - OFF LABEL USE [None]
